FAERS Safety Report 7377671-3 (Version None)
Quarter: 2011Q1

REPORT INFORMATION
  Report Type: 
  Country: None (occurrence: None)
  Receive Date: 20110328
  Receipt Date: 20110316
  Transmission Date: 20110831
  Serious: Yes (Hospitalization)
  Sender: FDA-Public Use
  Company Number: PHHY2011JP22454

PATIENT
  Age: 57 Year
  Sex: Female

DRUGS (8)
  1. LITHIUM CARBONATE [Concomitant]
     Route: 048
  2. OLANZAPINE [Concomitant]
     Dosage: UNK
     Route: 048
  3. HALOPERIDOL [Concomitant]
     Route: 048
  4. VALPROATE SODIUM [Concomitant]
     Dosage: UNK
     Route: 048
  5. TEGRETOL [Suspect]
     Dosage: 600 MG, UNK
     Route: 048
  6. QUETIAPINE FUMARATE [Concomitant]
     Route: 048
  7. RISPERIDONE [Concomitant]
     Route: 048
  8. LEVOMEPROMAZINE MALEATE [Concomitant]
     Route: 048

REACTIONS (2)
  - PERSONALITY CHANGE DUE TO A GENERAL MEDICAL CONDITION [None]
  - BIPOLAR DISORDER [None]
